FAERS Safety Report 7825081-4 (Version None)
Quarter: 2011Q4

REPORT INFORMATION
  Report Type: 
  Country: None (occurrence: None)
  Receive Date: 20111019
  Receipt Date: 20110819
  Transmission Date: 20120403
  Serious: No
  Sender: FDA-Public Use
  Company Number: US-BRISTOL-MYERS SQUIBB COMPANY-15916257

PATIENT
  Age: 80 Year
  Sex: Male
  Weight: 73 kg

DRUGS (1)
  1. AVALIDE [Suspect]
     Dosage: 1DF=300/12.5MG.
     Dates: start: 20040101

REACTIONS (1)
  - BLOOD PRESSURE INCREASED [None]
